FAERS Safety Report 5100026-9 (Version None)
Quarter: 2006Q3

REPORT INFORMATION
  Report Type: 
  Country: None (occurrence: None)
  Receive Date: 20060906
  Receipt Date: 20060820
  Transmission Date: 20061208
  Serious: Yes (Hospitalization)
  Sender: FDA-Public Use
  Company Number: 2005120062

PATIENT
  Age: 51 Year
  Sex: Male

DRUGS (11)
  1. CAVERJECT [Suspect]
     Indication: ERECTILE DYSFUNCTION
     Dosage: 20 MCG (20MCG, 1 IN 1 D), INTRACAVERNOSA  2 YEARS AGO
  2. CAVERJECT [Suspect]
  3. NOVOLIN N [Concomitant]
  4. NOVOLIN R [Concomitant]
  5. ASPIRIN [Concomitant]
  6. EZETIMIBE (EZETIMIBE) [Concomitant]
  7. LISINOPRIL (LISINIOPRIL) [Concomitant]
  8. ZOCOR [Concomitant]
  9. METOPROLOL (METOPROLOL) [Concomitant]
  10. FELODIPINE [Concomitant]
  11. CELEXA [Suspect]
     Indication: DEPRESSION

REACTIONS (3)
  - DRUG INEFFECTIVE [None]
  - MYOCARDIAL INFARCTION [None]
  - PENILE PAIN [None]
